FAERS Safety Report 17682769 (Version 1)
Quarter: 2020Q2

REPORT INFORMATION
  Report Type: Spontaneous
  Country: JP (occurrence: JP)
  Receive Date: 20200419
  Receipt Date: 20200419
  Transmission Date: 20200714
  Serious: Yes (Hospitalization)
  Sender: FDA-Public Use
  Company Number: JP-009507513-2003JPN002547J

PATIENT
  Age: 66 Year
  Sex: Male

DRUGS (3)
  1. PREVYMIS [Suspect]
     Active Substance: LETERMOVIR
     Indication: ANTIVIRAL PROPHYLAXIS
     Dosage: 480 MILLIGRAM DAILY
     Route: 048
     Dates: start: 20181220
  2. TACROLIMUS HYDRATE [Interacting]
     Active Substance: TACROLIMUS
     Dosage: 2 MILLIGRAM/ DAILY
     Route: 048
  3. TACROLIMUS HYDRATE [Interacting]
     Active Substance: TACROLIMUS
     Dosage: 0.5 MILLIGRAM /DAILY
     Route: 048

REACTIONS (3)
  - Product use issue [Unknown]
  - Drug interaction [Unknown]
  - Drug level increased [Recovering/Resolving]

NARRATIVE: CASE EVENT DATE: 20181220
